FAERS Safety Report 8377248-7 (Version None)
Quarter: 2012Q2

REPORT INFORMATION
  Report Type: 
  Country: None (occurrence: None)
  Receive Date: 20120522
  Receipt Date: 20120516
  Transmission Date: 20120825
  Serious: Yes (Other)
  Sender: FDA-Public Use
  Company Number: US-ROCHE-1016867

PATIENT
  Sex: Female

DRUGS (1)
  1. ZELBORAF [Suspect]
     Indication: MALIGNANT MELANOMA
     Dosage: UNKNOWN
     Route: 048

REACTIONS (10)
  - AGEUSIA [None]
  - HEADACHE [None]
  - PRURITUS [None]
  - RASH [None]
  - ARTHRALGIA [None]
  - VISUAL IMPAIRMENT [None]
  - NEOPLASM [None]
  - MELANOCYTIC NAEVUS [None]
  - NAUSEA [None]
  - DRY SKIN [None]
